FAERS Safety Report 5281465-2 (Version None)
Quarter: 2007Q1

REPORT INFORMATION
  Report Type: 
  Country: None (occurrence: None)
  Receive Date: 20070330
  Receipt Date: 20070319
  Transmission Date: 20070707
  Serious: Yes (Other)
  Sender: FDA-Public Use
  Company Number: PHBS2007JP05088

PATIENT

DRUGS (2)
  1. LOCHOL [Suspect]
     Route: 048
  2. ALLOPURINOL [Concomitant]

REACTIONS (1)
  - FINGER DEFORMITY [None]
